FAERS Safety Report 24030506 (Version 1)
Quarter: 2024Q2

REPORT INFORMATION
  Report Type: Spontaneous
  Country: JP (occurrence: JP)
  Receive Date: 20240628
  Receipt Date: 20240628
  Transmission Date: 20240716
  Serious: Yes (Other)
  Sender: FDA-Public Use
  Company Number: JP-RADIUS HEALTH, INC.-2024JP004689

PATIENT
  Age: 34 Year
  Sex: Male

DRUGS (15)
  1. ABALOPARATIDE [Suspect]
     Active Substance: ABALOPARATIDE
     Indication: Osteoporosis
     Dosage: 80 MICROGRAM
     Route: 058
     Dates: start: 202402, end: 20240618
  2. VALPROATE SODIUM [Suspect]
     Active Substance: VALPROATE SODIUM
     Indication: Product used for unknown indication
     Dosage: 2.5 GRAM
     Route: 048
  3. ZONISAMIDE [Suspect]
     Active Substance: ZONISAMIDE
     Indication: Product used for unknown indication
     Dosage: 0.9 GRAM
     Route: 048
  4. MYSTAN [Suspect]
     Active Substance: CLOBAZAM
     Indication: Product used for unknown indication
     Dosage: 1 GRAM
     Route: 048
  5. LEVETIRACETAM [Suspect]
     Active Substance: LEVETIRACETAM
     Indication: Product used for unknown indication
     Dosage: 2.4 GRAM
     Route: 048
  6. FYCOMPA [Suspect]
     Active Substance: PERAMPANEL
     Indication: Product used for unknown indication
     Dosage: 0.4 GRAM
     Route: 048
  7. TALTIRELIN [Suspect]
     Active Substance: TALTIRELIN
     Indication: Product used for unknown indication
     Dosage: 10 MILLIGRAM
     Route: 048
  8. ARTEMETHER [Suspect]
     Active Substance: ARTEMETHER
     Indication: Product used for unknown indication
     Dosage: 0.6 GRAM
     Route: 048
  9. TIZANIDINE [Suspect]
     Active Substance: TIZANIDINE
     Indication: Product used for unknown indication
     Dosage: 1.0 GRAM
     Route: 048
  10. DANTRIUM [Suspect]
     Active Substance: DANTROLENE SODIUM
     Indication: Product used for unknown indication
     Dosage: 50 MILLIGRAM
     Route: 048
  11. MIYA-BM [Suspect]
     Active Substance: CLOSTRIDIUM BUTYRICUM SPORES STRAIN M-55
     Indication: Product used for unknown indication
     Dosage: 6 DOSAGE FORM
     Route: 048
  12. HERBALS [Suspect]
     Active Substance: HERBALS
     Indication: Product used for unknown indication
     Dosage: 7.5 G
  13. LEVOCARNITINE [Suspect]
     Active Substance: LEVOCARNITINE
     Indication: Osteoporosis
     Dosage: 10 MILLILITRE
     Route: 048
     Dates: end: 20240618
  14. POTASSIUM CHLORIDE\SODIUM CHLORIDE\SODIUM LACTATE [Suspect]
     Active Substance: POTASSIUM CHLORIDE\SODIUM CHLORIDE\SODIUM LACTATE
     Indication: Product used for unknown indication
  15. ALFAROL [Suspect]
     Active Substance: ALFACALCIDOL
     Indication: Product used for unknown indication

REACTIONS (4)
  - Blood urea increased [Not Recovered/Not Resolved]
  - Blood creatinine increased [Not Recovered/Not Resolved]
  - Oedema peripheral [Not Recovered/Not Resolved]
  - Renal failure [Not Recovered/Not Resolved]

NARRATIVE: CASE EVENT DATE: 20240614
